FAERS Safety Report 9719631 (Version 1)
Quarter: 2013Q4

REPORT INFORMATION
  Report Type: Spontaneous
  Country: US (occurrence: US)
  Receive Date: 20131128
  Receipt Date: 20131128
  Transmission Date: 20140711
  Serious: No
  Sender: FDA-Public Use
  Company Number: US-US-EMD SERONO, INC.-7251374

PATIENT
  Sex: Female

DRUGS (12)
  1. REBIF [Suspect]
     Indication: MULTIPLE SCLEROSIS
     Route: 058
     Dates: start: 20100918
  2. OMEPRAZOLE [Concomitant]
     Indication: PRODUCT USED FOR UNKNOWN INDICATION
  3. SENNA                              /00142201/ [Concomitant]
     Indication: PRODUCT USED FOR UNKNOWN INDICATION
  4. ALBUTEROL SULFATE                  /00139502/ [Concomitant]
     Indication: PRODUCT USED FOR UNKNOWN INDICATION
  5. PRO-AIR [Concomitant]
     Indication: PRODUCT USED FOR UNKNOWN INDICATION
  6. TOPAMAX [Concomitant]
     Indication: PRODUCT USED FOR UNKNOWN INDICATION
  7. ZOLOFT                             /01011401/ [Concomitant]
     Indication: PRODUCT USED FOR UNKNOWN INDICATION
  8. IMURAN                             /00001501/ [Concomitant]
     Indication: PRODUCT USED FOR UNKNOWN INDICATION
  9. METHOCARBAMOL [Concomitant]
     Indication: PRODUCT USED FOR UNKNOWN INDICATION
  10. PROVIGIL [Concomitant]
     Indication: PRODUCT USED FOR UNKNOWN INDICATION
  11. TRAMADOL HCL [Concomitant]
     Indication: PRODUCT USED FOR UNKNOWN INDICATION
  12. DIAZEPAM [Concomitant]
     Indication: PRODUCT USED FOR UNKNOWN INDICATION

REACTIONS (4)
  - Nausea [Unknown]
  - Amnesia [Not Recovered/Not Resolved]
  - Influenza like illness [Unknown]
  - Injection site reaction [Not Recovered/Not Resolved]
